FAERS Safety Report 8804818 (Version 2)
Quarter: 2012Q4

REPORT INFORMATION
  Report Type: 
  Country: US (occurrence: US)
  Receive Date: 20120924
  Receipt Date: 20121015
  Transmission Date: 20130627
  Serious: Yes (Death)
  Sender: FDA-Public Use
  Company Number: US-ROCHE-1125027

PATIENT
  Sex: Male

DRUGS (2)
  1. AVASTIN [Suspect]
     Indication: RECTAL CANCER
     Route: 065
     Dates: start: 2006, end: 20061205
  2. AVASTIN [Suspect]
     Indication: ANAL CANCER

REACTIONS (1)
  - Disease progression [Fatal]
